FAERS Safety Report 5845670-6 (Version None)
Quarter: 2008Q3

REPORT INFORMATION
  Report Type: 
  Country: None (occurrence: None)
  Receive Date: 20080814
  Receipt Date: 20080804
  Transmission Date: 20090109
  Serious: Yes (Other)
  Sender: FDA-Public Use
  Company Number: ZA-ROCHE-579187

PATIENT

DRUGS (1)
  1. ROFERON-A [Suspect]
     Indication: DRUG USE FOR UNKNOWN INDICATION
     Route: 065

REACTIONS (1)
  - HYPERTENSIVE CRISIS [None]
